FAERS Safety Report 7421712-1 (Version None)
Quarter: 2011Q2

REPORT INFORMATION
  Report Type: 
  Country: None (occurrence: None)
  Receive Date: 20110418
  Receipt Date: 20101029
  Transmission Date: 20111010
  Serious: Yes (Hospitalization, Other)
  Sender: FDA-Public Use
  Company Number: US-BAYER-201022909NA

PATIENT
  Age: 26 Year
  Sex: Female
  Weight: 72.562 kg

DRUGS (7)
  1. YAZ [Suspect]
     Indication: PREMENSTRUAL SYNDROME
  2. MULTI-VITAMINS [Concomitant]
  3. YAZ [Suspect]
     Indication: CONTRACEPTION
     Dosage: UNK UNK, QD
     Route: 048
     Dates: start: 20070101
  4. YAZ [Suspect]
     Indication: ACNE
  5. ASCORBIC ACID [Concomitant]
     Dosage: DAILY
  6. POTASSIUM [Concomitant]
     Dosage: DAILY
  7. NSAID'S [Concomitant]
     Dosage: UNK UNK, PRN

REACTIONS (6)
  - HEPATIC ENZYME INCREASED [None]
  - CHOLELITHIASIS [None]
  - ABDOMINAL PAIN [None]
  - PROCEDURAL PAIN [None]
  - ABDOMINAL TENDERNESS [None]
  - BILE DUCT STONE [None]
